FAERS Safety Report 9265093 (Version 1)
Quarter: 2013Q2

REPORT INFORMATION
  Report Type: Spontaneous
  Country: US (occurrence: US)
  Receive Date: 20130501
  Receipt Date: 20130501
  Transmission Date: 20140414
  Serious: No
  Sender: FDA-Public Use
  Company Number: US-PFIZER INC-2013132432

PATIENT
  Age: 54 Year
  Sex: Female
  Weight: 57.14 kg

DRUGS (5)
  1. LEVOXYL [Suspect]
     Indication: THYROID DISORDER
     Dosage: 25 UG, 1X/DAY
     Route: 048
     Dates: start: 1999
  2. LEVOXYL [Suspect]
     Dosage: 50 UG, 1X/DAY
     Route: 048
  3. LEVOXYL [Suspect]
     Dosage: 75 UG, 1X/DAY
     Route: 048
  4. LEVOXYL [Suspect]
     Dosage: SPLITTING THE TABLET OF 125MCG IN HALF DAILY
     Route: 048
  5. PROVENTIL HFA [Concomitant]
     Indication: HYPERSENSITIVITY
     Dosage: UNK

REACTIONS (5)
  - Drug ineffective [Unknown]
  - Malaise [Recovered/Resolved]
  - Drug intolerance [Unknown]
  - Alopecia [Unknown]
  - Skin disorder [Unknown]
